FAERS Safety Report 4314510-9 (Version None)
Quarter: 2004Q1

REPORT INFORMATION
  Report Type: 
  Country: None (occurrence: None)
  Receive Date: 20040308
  Receipt Date: 20040223
  Transmission Date: 20041129
  Serious: Yes (Hospitalization)
  Sender: FDA-Public Use
  Company Number: US-JNJFOC-20031006494

PATIENT
  Age: 68 Year
  Sex: Female

DRUGS (5)
  1. DURAGESIC [Suspect]
     Indication: PAIN
     Dosage: SEE IMAGE
     Route: 062
     Dates: start: 20030401, end: 20030801
  2. DURAGESIC [Suspect]
     Indication: PAIN
     Dosage: SEE IMAGE
     Route: 062
     Dates: start: 20030801
  3. ANTIHYPERTENSIVES (ANTIHYPERTENSIVES) [Concomitant]
  4. LASIX [Concomitant]
  5. ARICEPT [Concomitant]

REACTIONS (5)
  - CONDITION AGGRAVATED [None]
  - DRUG SCREEN NEGATIVE [None]
  - MYOCARDIAL INFARCTION [None]
  - PAIN EXACERBATED [None]
  - SPINAL OSTEOARTHRITIS [None]
